FAERS Safety Report 24625390 (Version 2)
Quarter: 2024Q4

REPORT INFORMATION
  Report Type: Spontaneous
  Country: AU (occurrence: AU)
  Receive Date: 20241115
  Receipt Date: 20241225
  Transmission Date: 20250115
  Serious: Yes (Other)
  Sender: CSL BEHRING
  Company Number: AU-BEH-2024183151

PATIENT
  Age: 17 Year
  Sex: Male
  Weight: 78.9 kg

DRUGS (2)
  1. HIZENTRA [Suspect]
     Active Substance: HUMAN IMMUNOGLOBULIN G
     Indication: Acquired immunodeficiency syndrome
     Dosage: 7 G, QW
     Route: 058
     Dates: start: 20240822, end: 20240822
  2. HIZENTRA [Suspect]
     Active Substance: HUMAN IMMUNOGLOBULIN G
     Dosage: 7 G, QW
     Route: 058
     Dates: start: 20240822, end: 20240822

REACTIONS (5)
  - Infusion site infection [Not Recovered/Not Resolved]
  - Skin disorder [Not Recovered/Not Resolved]
  - Infusion site erythema [Not Recovered/Not Resolved]
  - Wound [Not Recovered/Not Resolved]
  - Infusion site scab [Not Recovered/Not Resolved]

NARRATIVE: CASE EVENT DATE: 20240822
